FAERS Safety Report 4511225-9 (Version None)
Quarter: 2004Q4

REPORT INFORMATION
  Report Type: 
  Country: None (occurrence: None)
  Receive Date: 20041129
  Receipt Date: 20041116
  Transmission Date: 20050328
  Serious: Yes (Hospitalization)
  Sender: FDA-Public Use
  Company Number: CZ-JNJFOC-20041104067

PATIENT
  Sex: Female

DRUGS (7)
  1. REMICADE [Suspect]
     Indication: RHEUMATOID ARTHRITIS
     Route: 042
  2. PREDNISON [Concomitant]
     Route: 049
  3. INSULIN ACTRAPID [Concomitant]
     Dosage: 14-12-12 UNITS
     Route: 058
  4. INSULTARD [Concomitant]
     Dosage: 16 UNITS AT 10PM
     Route: 058
  5. ULCOSAN [Concomitant]
     Route: 049
  6. FOSAMAX [Concomitant]
  7. BETALOC 25 [Concomitant]
     Route: 049

REACTIONS (2)
  - FALL [None]
  - FEMUR FRACTURE [None]
